FAERS Safety Report 7017962-9 (Version None)
Quarter: 2010Q3

REPORT INFORMATION
  Report Type: 
  Country: None (occurrence: None)
  Receive Date: 20100928
  Receipt Date: 20100923
  Transmission Date: 20110219
  Serious: Yes (Other)
  Sender: FDA-Public Use
  Company Number: DE-SANOFI-AVENTIS-2010SA057016

PATIENT
  Age: 32 Year
  Sex: Female
  Weight: 70 kg

DRUGS (4)
  1. FOLIC ACID [Suspect]
     Indication: PROPHYLAXIS
     Route: 048
  2. ASPIRIN [Suspect]
     Indication: PROPHYLAXIS
     Route: 065
  3. ENOXAPARIN SODIUM [Suspect]
     Indication: PROPHYLAXIS
     Dosage: THREE DAILY DOSE
     Route: 065
  4. LENOGRASTIM [Concomitant]
     Indication: PROPHYLAXIS
     Dosage: DOSE: 13.4 MILLION IU
     Route: 065

REACTIONS (3)
  - DRUG EXPOSURE DURING PREGNANCY [None]
  - HAEMORRHAGE [None]
  - PROLONGED LABOUR [None]
